FAERS Safety Report 12274724 (Version 1)
Quarter: 2016Q2

REPORT INFORMATION
  Report Type: Spontaneous
  Country: US (occurrence: US)
  Receive Date: 20160415
  Receipt Date: 20160415
  Transmission Date: 20160815
  Serious: No
  Sender: FDA-Public Use
  Company Number: US-ALLERGAN-1507673US

PATIENT
  Sex: Female

DRUGS (2)
  1. LATISSE [Suspect]
     Active Substance: BIMATOPROST
     Indication: GROWTH OF EYELASHES
     Dosage: UNK, QD
     Route: 003
     Dates: start: 2014, end: 201504
  2. RESTASIS [Concomitant]
     Active Substance: CYCLOSPORINE
     Indication: EYE DISORDER
     Dosage: UNK
     Route: 047

REACTIONS (2)
  - Eye infection [Recovered/Resolved]
  - Acrochordon [Not Recovered/Not Resolved]

NARRATIVE: CASE EVENT DATE: 2014
